FAERS Safety Report 23314670 (Version 1)
Quarter: 2023Q4

REPORT INFORMATION
  Report Type: Spontaneous
  Country: SA (occurrence: SA)
  Receive Date: 20231219
  Receipt Date: 20231219
  Transmission Date: 20240110
  Serious: Yes (Other)
  Sender: FDA-Public Use
  Company Number: SA-SUN PHARMACEUTICAL INDUSTRIES LTD-2023RR-423023

PATIENT
  Age: 41 Year
  Sex: Female

DRUGS (3)
  1. AZITHROMYCIN [Suspect]
     Active Substance: AZITHROMYCIN
     Indication: Acne
     Dosage: 250 MILLIGRAM, TID
     Route: 048
  2. CLINDAMYCIN [Suspect]
     Active Substance: CLINDAMYCIN
     Indication: Acne
     Dosage: 1 DOSAGE FORM, BID
     Route: 003
  3. METRONIDAZOLE [Suspect]
     Active Substance: METRONIDAZOLE
     Indication: Product used for unknown indication
     Dosage: 500 MILLIGRAM, TID
     Route: 065

REACTIONS (7)
  - Drug ineffective [Unknown]
  - Clostridium difficile infection [Unknown]
  - Abdominal pain [Unknown]
  - Faeces soft [Unknown]
  - Flatulence [Unknown]
  - Abnormal faeces [Unknown]
  - Haematochezia [Unknown]
